FAERS Safety Report 18925330 (Version 2)
Quarter: 2021Q2

REPORT INFORMATION
  Report Type: Spontaneous
  Country: US (occurrence: US)
  Receive Date: 20210222
  Receipt Date: 20210519
  Transmission Date: 20210717
  Serious: Yes (Hospitalization, Other)
  Sender: FDA-Public Use
  Company Number: US-B.I. PHARMACEUTICALS,INC./RIDGEFIELD-2021-BI-083976

PATIENT
  Age: 46 Year
  Sex: Male
  Weight: 97.52 kg

DRUGS (7)
  1. HUMIRA [Suspect]
     Active Substance: ADALIMUMAB
     Indication: ANKYLOSING SPONDYLITIS
     Dosage: DAILY DOSE: CITRATE FREE (1 IN 2 WK)??SOLUTION FOR INJECTION IN PRE?FILLED PEN
     Route: 058
     Dates: start: 202005
  2. LISINOPRIL. [Concomitant]
     Active Substance: LISINOPRIL
     Indication: HYPERTENSION
  3. LORTAB [HYDROCODONE BITARTRATE;PARACETAMOL;PROMETHAZINE HYDROCHLORIDE] [Concomitant]
     Active Substance: ACETAMINOPHEN\HYDROCODONE\PROMETHAZINE
     Indication: PAIN
  4. MOBIC [Suspect]
     Active Substance: MELOXICAM
     Indication: ARTHRITIS
     Route: 048
  5. HYDROCHLOROTHIAZIDE. [Concomitant]
     Active Substance: HYDROCHLOROTHIAZIDE
     Indication: BLOOD PRESSURE MEASUREMENT
  6. IBUPROFEN. [Suspect]
     Active Substance: IBUPROFEN
     Indication: PAIN
     Route: 048
  7. VITAMIN C [Concomitant]
     Active Substance: ASCORBIC ACID
     Indication: SUPPLEMENTATION THERAPY

REACTIONS (27)
  - Dizziness [Recovered/Resolved]
  - Arthralgia [Not Recovered/Not Resolved]
  - Spinal compression fracture [Unknown]
  - Osteoarthritis [Recovered/Resolved]
  - Osteoarthritis [Unknown]
  - Spinal column injury [Unknown]
  - Spinal fracture [Unknown]
  - Injection site erythema [Recovered/Resolved]
  - Pain [Not Recovered/Not Resolved]
  - Tension headache [Not Recovered/Not Resolved]
  - Back pain [Recovering/Resolving]
  - Haemoglobin decreased [Unknown]
  - Mobility decreased [Unknown]
  - Knee operation [Unknown]
  - Injection site pain [Recovered/Resolved]
  - Inflammation [Recovering/Resolving]
  - Large intestinal ulcer [Unknown]
  - Knee operation [Not Recovered/Not Resolved]
  - Spinal column injury [Not Recovered/Not Resolved]
  - Spinal compression fracture [Not Recovered/Not Resolved]
  - Mobility decreased [Recovering/Resolving]
  - Frequent bowel movements [Unknown]
  - Large intestinal ulcer [Not Recovered/Not Resolved]
  - Arthralgia [Unknown]
  - Sleep deficit [Recovered/Resolved]
  - Abnormal faeces [Unknown]
  - Stenosis [Not Recovered/Not Resolved]

NARRATIVE: CASE EVENT DATE: 2019
